FAERS Safety Report 4659652-3 (Version None)
Quarter: 2005Q2

REPORT INFORMATION
  Report Type: 
  Country: None (occurrence: None)
  Receive Date: 20050411
  Receipt Date: 20050111
  Transmission Date: 20051028
  Serious: No
  Sender: FDA-Public Use
  Company Number: A03200500093

PATIENT
  Age: 30 Month
  Sex: Female

DRUGS (1)
  1. UROXATRAL [Suspect]
     Dosage: 10 MG ONCE - ORAL
     Route: 048
     Dates: start: 20050111, end: 20050111

REACTIONS (1)
  - ACCIDENTAL EXPOSURE [None]
